FAERS Safety Report 19430218 (Version 1)
Quarter: 2021Q2

REPORT INFORMATION
  Report Type: Spontaneous
  Country: CN (occurrence: CN)
  Receive Date: 20210617
  Receipt Date: 20210617
  Transmission Date: 20210717
  Serious: Yes (Life-Threatening, Hospitalization, Other)
  Sender: FDA-Public Use
  Company Number: CN-ROCHE-2848040

PATIENT
  Age: 70 Year
  Sex: Female
  Weight: 58 kg

DRUGS (5)
  1. CYCLOPHOSPHAMIDE. [Concomitant]
     Active Substance: CYCLOPHOSPHAMIDE
     Indication: NON-HODGKIN^S LYMPHOMA
     Dates: start: 20210328
  2. VINDESINE [Concomitant]
     Active Substance: VINDESINE
     Indication: NON-HODGKIN^S LYMPHOMA
     Dates: start: 20210328
  3. MABTHERA [Suspect]
     Active Substance: RITUXIMAB
     Indication: NON-HODGKIN^S LYMPHOMA
     Route: 041
     Dates: start: 20210327, end: 20210419
  4. PREDNISONE. [Concomitant]
     Active Substance: PREDNISONE
     Indication: NON-HODGKIN^S LYMPHOMA
     Dates: start: 20210327
  5. LIPOSOMAL DOXORUBICIN [Concomitant]
     Active Substance: DOXORUBICIN HYDROCHLORIDE
     Indication: NON-HODGKIN^S LYMPHOMA
     Dates: start: 20210328

REACTIONS (12)
  - Oropharyngeal discomfort [Recovering/Resolving]
  - Rash erythematous [Recovering/Resolving]
  - Pruritus [Recovering/Resolving]
  - Renal cyst [Recovering/Resolving]
  - Pyrexia [Recovered/Resolved]
  - Pollakiuria [Recovering/Resolving]
  - Aortic arteriosclerosis [Recovering/Resolving]
  - Infected neoplasm [Recovering/Resolving]
  - Hepatic cyst [Recovering/Resolving]
  - Pleural thickening [Recovering/Resolving]
  - Eyelid oedema [Recovering/Resolving]
  - Hypotension [Recovering/Resolving]

NARRATIVE: CASE EVENT DATE: 20210506
